FAERS Safety Report 5926884-3 (Version None)
Quarter: 2008Q4

REPORT INFORMATION
  Report Type: 
  Country: None (occurrence: None)
  Receive Date: 20081022
  Receipt Date: 20081013
  Transmission Date: 20090506
  Serious: Yes (Other)
  Sender: FDA-Public Use
  Company Number: IR-TYCO HEALTHCARE/MALLINCKRODT-T200801673

PATIENT

DRUGS (1)
  1. PHOSPHOCOL P32 [Suspect]
     Indication: RADIOTHERAPY

REACTIONS (2)
  - DRUG ADMINISTRATION ERROR [None]
  - VISUAL ACUITY REDUCED [None]
